FAERS Safety Report 19516974 (Version 4)
Quarter: 2021Q3

REPORT INFORMATION
  Report Type: Spontaneous
  Country: CA (occurrence: CA)
  Receive Date: 20210711
  Receipt Date: 20210820
  Transmission Date: 20211014
  Serious: Yes (Other)
  Sender: FDA-Public Use
  Company Number: CA-BAXTER-2021BAX018960

PATIENT
  Sex: Female

DRUGS (1)
  1. 0.9% SODIUM CHLORIDE IRRIGATION [Suspect]
     Active Substance: SODIUM CHLORIDE
     Indication: IRRIGATION THERAPY
     Route: 065
     Dates: start: 202010

REACTIONS (2)
  - Malaise [Unknown]
  - Ascites [Unknown]

NARRATIVE: CASE EVENT DATE: 202010
